FAERS Safety Report 12795252 (Version 1)
Quarter: 2016Q3

REPORT INFORMATION
  Report Type: Spontaneous
  Country: US (occurrence: US)
  Receive Date: 20160929
  Receipt Date: 20160929
  Transmission Date: 20161109
  Serious: Yes (Other)
  Sender: FDA-Public Use
  Company Number: US-PFIZER INC-2016451285

PATIENT

DRUGS (1)
  1. VENLAFAXINE HCL [Suspect]
     Active Substance: VENLAFAXINE HYDROCHLORIDE
     Dosage: 37.5 MG, UNK

REACTIONS (18)
  - Feeling abnormal [Unknown]
  - Memory impairment [Unknown]
  - Dry mouth [Unknown]
  - Mood altered [Unknown]
  - Hyperhidrosis [Unknown]
  - Palpitations [Unknown]
  - Crying [Unknown]
  - Insomnia [Unknown]
  - Nausea [Unknown]
  - Dizziness [Unknown]
  - Anxiety [Unknown]
  - Depressed mood [Unknown]
  - Somnolence [Unknown]
  - Thinking abnormal [Unknown]
  - Disease recurrence [Unknown]
  - Suicidal ideation [Unknown]
  - Heart rate abnormal [Unknown]
  - Nervousness [Unknown]
